FAERS Safety Report 24238106 (Version 7)
Quarter: 2025Q1

REPORT INFORMATION
  Report Type: Spontaneous
  Country: US (occurrence: US)
  Receive Date: 20240822
  Receipt Date: 20250117
  Transmission Date: 20250409
  Serious: Yes (Death, Other)
  Sender: PFIZER
  Company Number: US-PFIZER INC-PV202400108402

PATIENT
  Age: 82 Year
  Sex: Male
  Weight: 69.8 kg

DRUGS (5)
  1. BOSULIF [Suspect]
     Active Substance: BOSUTINIB MONOHYDRATE
     Indication: Chronic myeloid leukaemia
     Dosage: 300 MG, DAILY (3 X 100 MG)
     Route: 048
  2. BOSULIF [Suspect]
     Active Substance: BOSUTINIB MONOHYDRATE
  3. BOSULIF [Suspect]
     Active Substance: BOSUTINIB MONOHYDRATE
     Dosage: 100 MG TABLET (ONE 500 MG TABLET AND ONE 100 MG TAB DAILY)
  4. PLAVIX [Concomitant]
     Active Substance: CLOPIDOGREL BISULFATE
     Indication: Platelet disorder
  5. ASPIRIN [Concomitant]
     Active Substance: ASPIRIN
     Indication: Platelet disorder

REACTIONS (38)
  - Death [Fatal]
  - Thrombocytopenia [Unknown]
  - Vertebral artery occlusion [Unknown]
  - Vertebral artery stenosis [Unknown]
  - Product prescribing issue [Unknown]
  - Leukocytosis [Unknown]
  - Monocytosis [Unknown]
  - Anaemia [Unknown]
  - Splenomegaly [Unknown]
  - Weight decreased [Unknown]
  - Dizziness [Unknown]
  - Headache [Unknown]
  - Carbon dioxide decreased [Unknown]
  - Vomiting [Unknown]
  - Balance disorder [Unknown]
  - Monocyte count increased [Unknown]
  - Bone marrow disorder [Unknown]
  - Abdominal pain [Unknown]
  - Platelet count decreased [Unknown]
  - White blood cell count increased [Unknown]
  - Haemoglobin decreased [Unknown]
  - Fatigue [Unknown]
  - Decreased appetite [Unknown]
  - Abdominal distension [Unknown]
  - Pain [Unknown]
  - Stress [Unknown]
  - Tension [Unknown]
  - Nervousness [Unknown]
  - Anxiety [Unknown]
  - Insomnia [Unknown]
  - Haematocrit decreased [Unknown]
  - Mean cell volume increased [Unknown]
  - Mean cell haemoglobin [Unknown]
  - Mean platelet volume increased [Unknown]
  - Lymphocyte count decreased [Unknown]
  - Eosinophil count decreased [Unknown]
  - Neutrophil count increased [Unknown]
  - Arthralgia [Not Recovered/Not Resolved]

NARRATIVE: CASE EVENT DATE: 20221101
